FAERS Safety Report 4627985-2 (Version None)
Quarter: 2005Q2

REPORT INFORMATION
  Report Type: 
  Country: None (occurrence: None)
  Receive Date: 20050401
  Receipt Date: 20050321
  Transmission Date: 20051028
  Serious: Yes (Disabling)
  Sender: FDA-Public Use
  Company Number: GXKR2005GB00815

PATIENT
  Age: 69 Year
  Sex: Female

DRUGS (7)
  1. AMOXICILLIN [Suspect]
     Indication: URINARY TRACT INFECTION
     Dosage: 500 MG, TID, INTRAVENOUS
     Route: 042
     Dates: start: 20050216, end: 20050223
  2. BECLOMETHASONE DIPROPIONATE [Suspect]
     Indication: WHEEZING
     Dosage: 200 UG, BID, INHALATION
     Route: 055
  3. GABAPENTIN [Concomitant]
  4. KLIOFEM (ESTRADIOL, NORETHISTERONE ACETATE) [Concomitant]
  5. BUPRENORPHINE HCL [Concomitant]
  6. CALCICHEW D3 (CALCIUM CARBONATE, COLECALCIFEROL) [Concomitant]
  7. ALBUTEROL SULFATE HFA [Concomitant]

REACTIONS (1)
  - ORAL CANDIDIASIS [None]
